FAERS Safety Report 20301125 (Version 1)
Quarter: 2022Q1

REPORT INFORMATION
  Report Type: Spontaneous
  Country: None (occurrence: US)
  Receive Date: 20220105
  Receipt Date: 20220105
  Transmission Date: 20220423
  Serious: No
  Sender: FDA-Public Use
  Company Number: US-Jacobus Pharmaceutical Company, Inc.-2123643

PATIENT
  Age: 60 Year
  Sex: Female

DRUGS (15)
  1. RUZURGI [Suspect]
     Active Substance: AMIFAMPRIDINE
     Indication: Myasthenic syndrome
     Route: 048
     Dates: start: 20200328
  2. SYNTHROID [Concomitant]
     Active Substance: LEVOTHYROXINE SODIUM
  3. METHOTREXATE [Concomitant]
     Active Substance: METHOTREXATE
  4. PREDNISONE [Concomitant]
     Active Substance: PREDNISONE
  5. XELJANZ [Concomitant]
     Active Substance: TOFACITINIB CITRATE
  6. ATORVASTATIN CALCIUM [Concomitant]
     Active Substance: ATORVASTATIN CALCIUM
  7. FOLIC ACID [Concomitant]
     Active Substance: FOLIC ACID
  8. IRON [Concomitant]
     Active Substance: IRON
  9. MAGNESIUM OXIDE [Concomitant]
     Active Substance: MAGNESIUM OXIDE
  10. OMEGA-3 ACID ETHYL ESTERS (DOCONEXENT\ICOSAPENT\OMEGA-3 FATTY ACIDS) [Concomitant]
     Active Substance: DOCONEXENT\ICOSAPENT\OMEGA-3 FATTY ACIDS
  11. ASPIRIN [Concomitant]
     Active Substance: ASPIRIN
  12. HERBALS\TURMERIC [Concomitant]
     Active Substance: HERBALS\TURMERIC
  13. CYANOCOBALAMIN [Concomitant]
     Active Substance: CYANOCOBALAMIN
  14. MOTRIN [Concomitant]
     Active Substance: IBUPROFEN
  15. TYLENOL [Concomitant]
     Active Substance: ACETAMINOPHEN

REACTIONS (2)
  - SARS-CoV-2 test positive [Unknown]
  - Tympanic membrane perforation [Unknown]
